FAERS Safety Report 9868885 (Version 4)
Quarter: 2014Q2

REPORT INFORMATION
  Report Type: Report from Study
  Country: US (occurrence: US)
  Receive Date: 20140204
  Receipt Date: 20140403
  Transmission Date: 20141212
  Serious: Yes (Death)
  Sender: FDA-Public Use
  Company Number: US-ONYX-2014-0236

PATIENT
  Age: 63 Year
  Sex: Male
  Weight: 95.34 kg

DRUGS (22)
  1. CARFILZOMIB [Suspect]
     Indication: PLASMA CELL MYELOMA
     Route: 042
     Dates: start: 20131125
  2. CARFILZOMIB [Suspect]
     Route: 042
     Dates: start: 20131202, end: 20131210
  3. CARFILZOMIB [Suspect]
     Route: 042
     Dates: start: 20131223, end: 20140128
  4. CYCLOPHOSPHAMIDE [Suspect]
     Indication: PLASMA CELL MYELOMA
     Route: 048
     Dates: start: 20131125, end: 20140127
  5. DEXAMETHASONE [Suspect]
     Indication: PLASMA CELL MYELOMA
     Route: 042
     Dates: start: 20131125, end: 20140127
  6. ADDERALL [Concomitant]
     Indication: ATTENTION DEFICIT/HYPERACTIVITY DISORDER
     Route: 048
     Dates: end: 20140130
  7. VITAMIN D [Concomitant]
     Indication: HYPOVITAMINOSIS
     Route: 048
     Dates: end: 20140130
  8. AMLODIPINE [Concomitant]
     Indication: HYPERTENSION
     Route: 048
     Dates: end: 20140130
  9. TRIAMTEME/HYDROCHLOROTHIAZIDE [Concomitant]
     Indication: HYPERTENSION
     Route: 048
     Dates: end: 20140130
  10. NEXIUM [Concomitant]
     Indication: GASTROOESOPHAGEAL REFLUX DISEASE
     Route: 048
     Dates: end: 20140130
  11. POTASSIUM SUPPLEMENT [Concomitant]
     Indication: BLOOD POTASSIUM DECREASED
     Route: 048
     Dates: start: 20131125, end: 20140130
  12. ACYCLOVIR [Concomitant]
     Indication: ANTIVIRAL PROPHYLAXIS
     Route: 048
     Dates: start: 20131111, end: 20140130
  13. CIALIS [Concomitant]
     Indication: PRODUCT USED FOR UNKNOWN INDICATION
     Route: 048
     Dates: start: 20120319, end: 20140130
  14. ZOMETA [Concomitant]
     Indication: PROPHYLAXIS
     Route: 042
     Dates: start: 20110127, end: 20140130
  15. ALPHA LIPOIC ACID [Concomitant]
     Indication: NEUROPATHY PERIPHERAL
     Route: 048
     Dates: start: 20110127, end: 20140130
  16. CALCIUM [Concomitant]
     Indication: MINERAL SUPPLEMENTATION
     Route: 048
     Dates: end: 20140130
  17. COQ10 [Concomitant]
     Indication: PROPHYLAXIS
     Route: 048
     Dates: end: 20140130
  18. JAPANESE MUSHROOM SUPPLEMENT [Concomitant]
     Indication: PROPHYLAXIS
     Route: 048
     Dates: end: 20140130
  19. OMEGA 3 FISH OIL [Concomitant]
     Indication: PROPHYLAXIS
     Route: 048
  20. CURCUMIN [Concomitant]
     Indication: PROPHYLAXIS
     Route: 048
     Dates: end: 20140130
  21. IRON [Concomitant]
     Indication: IRON DEFICIENCY
     Route: 042
     Dates: end: 20140130
  22. TRANSDERM-SC DIS [Concomitant]
     Indication: NAUSEA
     Route: 062
     Dates: start: 20140108, end: 20140130

REACTIONS (1)
  - Coronary artery disease [Fatal]
